FAERS Safety Report 5203583-7 (Version None)
Quarter: 2007Q1

REPORT INFORMATION
  Report Type: 
  Country: None (occurrence: None)
  Receive Date: 20070110
  Receipt Date: 20070102
  Transmission Date: 20070707
  Serious: Yes (Hospitalization)
  Sender: FDA-Public Use
  Company Number: US-ROCHE-443572

PATIENT
  Age: 24 Year
  Sex: Female
  Weight: 79.4 kg

DRUGS (2)
  1. ACCUTANE [Suspect]
     Indication: ACNE
     Route: 048
     Dates: start: 19860115, end: 19860615
  2. ORTHO TRI-CYCLEN [Concomitant]

REACTIONS (19)
  - ANAEMIA [None]
  - ANXIETY [None]
  - ARTHRITIS [None]
  - BACK PAIN [None]
  - COLITIS [None]
  - CROHN'S DISEASE [None]
  - DEPERSONALISATION [None]
  - DEPRESSION [None]
  - EMOTIONAL DISTRESS [None]
  - FUNGAL INFECTION [None]
  - GASTROOESOPHAGEAL REFLUX DISEASE [None]
  - HEADACHE [None]
  - INFLAMMATORY BOWEL DISEASE [None]
  - IRRITABLE BOWEL SYNDROME [None]
  - OESOPHAGITIS [None]
  - PANIC ATTACK [None]
  - PEPTIC ULCER [None]
  - PROCTITIS [None]
  - VULVAL CANCER [None]
